FAERS Safety Report 24107374 (Version 1)
Quarter: 2024Q3

REPORT INFORMATION
  Report Type: Report from Study
  Country: AU (occurrence: None)
  Receive Date: 20240718
  Receipt Date: 20240718
  Transmission Date: 20241017
  Serious: Yes (Other)
  Sender: ASTRAZENECA
  Company Number: 2020SF46288

PATIENT
  Age: 824 Month
  Sex: Female

DRUGS (1)
  1. FASENRA [Suspect]
     Active Substance: BENRALIZUMAB
     Dosage: 30.0MG UNKNOWN
     Route: 058

REACTIONS (3)
  - Transient ischaemic attack [Recovered/Resolved]
  - Orthostatic tremor [Unknown]
  - Illness [Unknown]

NARRATIVE: CASE EVENT DATE: 20200901
